FAERS Safety Report 25934954 (Version 1)
Quarter: 2025Q4

REPORT INFORMATION
  Report Type: Spontaneous
  Country: CA (occurrence: CA)
  Receive Date: 20251017
  Receipt Date: 20251017
  Transmission Date: 20260118
  Serious: Yes (Death, Other)
  Sender: BRISTOL-MYERS SQUIBB COMPANY
  Company Number: CA-BRISTOL-MYERS SQUIBB COMPANY-2025-142174

PATIENT
  Age: 44 Year
  Sex: Female
  Weight: 97 kg

DRUGS (86)
  1. TRIAMCINOLONE ACETONIDE [Suspect]
     Active Substance: TRIAMCINOLONE ACETONIDE
     Indication: Rheumatoid arthritis
     Dosage: SUSPENSION INTRA-ARTICULAR
  2. ACETAMINOPHEN [Concomitant]
     Active Substance: ACETAMINOPHEN
     Indication: Rheumatoid arthritis
  3. ACETAMINOPHEN [Concomitant]
     Active Substance: ACETAMINOPHEN
  4. CALCIUM CARBONATE\CHOLECALCIFEROL [Concomitant]
     Active Substance: CALCIUM CARBONATE\CHOLECALCIFEROL
     Indication: Product used for unknown indication
  5. CELECOXIB [Concomitant]
     Active Substance: CELECOXIB
     Indication: Product used for unknown indication
  6. CETIRIZINE [Concomitant]
     Active Substance: CETIRIZINE HYDROCHLORIDE
     Indication: Rheumatoid arthritis
  7. CETIRIZINE [Concomitant]
     Active Substance: CETIRIZINE HYDROCHLORIDE
  8. CHLORHEXIDINE GLUCONATE [Concomitant]
     Active Substance: CHLORHEXIDINE GLUCONATE
     Indication: Product used for unknown indication
  9. CHLORHEXIDINE GLUCONATE [Concomitant]
     Active Substance: CHLORHEXIDINE GLUCONATE
  10. CHLORHEXIDINE GLUCONATE [Concomitant]
     Active Substance: CHLORHEXIDINE GLUCONATE
  11. CORTISONE [Concomitant]
     Active Substance: CORTISONE
     Indication: Rheumatoid arthritis
  12. CORTISONE [Concomitant]
     Active Substance: CORTISONE
  13. CORTISONE [Concomitant]
     Active Substance: CORTISONE
  14. CORTISONE [Concomitant]
     Active Substance: CORTISONE
  15. CORTISONE ACETATE [Concomitant]
     Active Substance: CORTISONE ACETATE
     Indication: Rheumatoid arthritis
  16. CORTISONE ACETATE [Concomitant]
     Active Substance: CORTISONE ACETATE
  17. CORTISONE ACETATE [Concomitant]
     Active Substance: CORTISONE ACETATE
  18. CORTISONE ACETATE [Concomitant]
     Active Substance: CORTISONE ACETATE
  19. CORTISONE ACETATE [Concomitant]
     Active Substance: CORTISONE ACETATE
  20. CORTISONE ACETATE [Concomitant]
     Active Substance: CORTISONE ACETATE
  21. COSENTYX [Concomitant]
     Active Substance: SECUKINUMAB
     Indication: Rheumatoid arthritis
  22. COSENTYX [Concomitant]
     Active Substance: SECUKINUMAB
     Indication: Psoriatic arthropathy
  23. COSENTYX [Concomitant]
     Active Substance: SECUKINUMAB
  24. DESOXIMETASONE [Concomitant]
     Active Substance: DESOXIMETASONE
     Indication: Rheumatoid arthritis
  25. DESOXIMETASONE [Concomitant]
     Active Substance: DESOXIMETASONE
  26. DESOXIMETASONE [Concomitant]
     Active Substance: DESOXIMETASONE
  27. DESOXIMETASONE [Concomitant]
     Active Substance: DESOXIMETASONE
  28. DESOXIMETASONE [Concomitant]
     Active Substance: DESOXIMETASONE
  29. DESOXIMETASONE [Concomitant]
     Active Substance: DESOXIMETASONE
  30. DICLOFENAC [Concomitant]
     Active Substance: DICLOFENAC
     Indication: Product used for unknown indication
  31. DICLOFENAC [Concomitant]
     Active Substance: DICLOFENAC
  32. DICLOFENAC [Concomitant]
     Active Substance: DICLOFENAC
  33. DICLOFENAC [Concomitant]
     Active Substance: DICLOFENAC
  34. DICLOFENAC [Concomitant]
     Active Substance: DICLOFENAC
  35. DOXYCYCLINE HYCLATE [Concomitant]
     Active Substance: DOXYCYCLINE HYCLATE
     Indication: Product used for unknown indication
  36. ERELZI [Concomitant]
     Active Substance: ETANERCEPT-SZZS
     Indication: Rheumatoid arthritis
  37. ERELZI [Concomitant]
     Active Substance: ETANERCEPT-SZZS
  38. HYRIMOZ [Concomitant]
     Active Substance: ADALIMUMAB-ADAZ
     Indication: Psoriatic arthropathy
  39. HYRIMOZ [Concomitant]
     Active Substance: ADALIMUMAB-ADAZ
  40. HYRIMOZ [Concomitant]
     Active Substance: ADALIMUMAB-ADAZ
  41. HYRIMOZ [Concomitant]
     Active Substance: ADALIMUMAB-ADAZ
  42. INFLIXIMAB [Concomitant]
     Active Substance: INFLIXIMAB
     Indication: Rheumatoid arthritis
  43. FOSAPREPITANT DIMEGLUMINE [Concomitant]
     Active Substance: FOSAPREPITANT DIMEGLUMINE
     Indication: Product used for unknown indication
  44. FOSAPREPITANT DIMEGLUMINE [Concomitant]
     Active Substance: FOSAPREPITANT DIMEGLUMINE
  45. FOSAPREPITANT DIMEGLUMINE [Concomitant]
     Active Substance: FOSAPREPITANT DIMEGLUMINE
  46. METHOTREXATE [Concomitant]
     Active Substance: METHOTREXATE
     Indication: Product used for unknown indication
     Dosage: INJECTION, USP
  47. METHOTREXATE [Concomitant]
     Active Substance: METHOTREXATE
     Dosage: INJECTION, USP
  48. METHOTREXATE [Concomitant]
     Active Substance: METHOTREXATE
     Dosage: INJECTION, USP
  49. METHOTREXATE [Concomitant]
     Active Substance: METHOTREXATE
     Dosage: INJECTION, USP
  50. METHOTREXATE [Concomitant]
     Active Substance: METHOTREXATE
     Dosage: INJECTION, USP
  51. METHOTREXATE [Concomitant]
     Active Substance: METHOTREXATE
     Dosage: INJECTION, USP
  52. METHOTREXATE [Concomitant]
     Active Substance: METHOTREXATE
     Dosage: INJECTION, USP
  53. METHOTREXATE [Concomitant]
     Active Substance: METHOTREXATE
     Dosage: INJECTION, USP
  54. METHOTREXATE [Concomitant]
     Active Substance: METHOTREXATE
     Dosage: INJECTION, USP
  55. METHOTREXATE [Concomitant]
     Active Substance: METHOTREXATE
     Dosage: INJECTION, USP
  56. METHOTREXATE [Concomitant]
     Active Substance: METHOTREXATE
     Dosage: INJECTION, USP
  57. METHOTREXATE [Concomitant]
     Active Substance: METHOTREXATE
     Dosage: INJECTION, USP
  58. METHOTREXATE [Concomitant]
     Active Substance: METHOTREXATE
     Dosage: INJECTION, USP
  59. METHOTREXATE [Concomitant]
     Active Substance: METHOTREXATE
     Dosage: INJECTION, USP
  60. METHOTREXATE [Concomitant]
     Active Substance: METHOTREXATE
     Dosage: INJECTION, USP
  61. METHOTREXATE [Concomitant]
     Active Substance: METHOTREXATE
     Dosage: INJECTION, USP
  62. METHOTREXATE [Concomitant]
     Active Substance: METHOTREXATE
     Dosage: INJECTION, USP
  63. METHOTREXATE [Concomitant]
     Active Substance: METHOTREXATE
     Dosage: INJECTION, USP
  64. METHOTREXATE [Concomitant]
     Active Substance: METHOTREXATE
     Dosage: INJECTION, USP
  65. METHOTREXATE [Concomitant]
     Active Substance: METHOTREXATE
     Dosage: INJECTION, USP
  66. OXYCODONE [Concomitant]
     Active Substance: OXYCODONE
     Indication: Product used for unknown indication
  67. RITUXIMAB [Concomitant]
     Active Substance: RITUXIMAB
     Indication: Rheumatoid arthritis
  68. RITUXIMAB [Concomitant]
     Active Substance: RITUXIMAB
  69. ALENDRONATE SODIUM [Concomitant]
     Active Substance: ALENDRONATE SODIUM
     Indication: Rheumatoid arthritis
  70. ALENDRONATE SODIUM [Concomitant]
     Active Substance: ALENDRONATE SODIUM
  71. ALENDRONATE SODIUM [Concomitant]
     Active Substance: ALENDRONATE SODIUM
  72. ALENDRONATE SODIUM [Concomitant]
     Active Substance: ALENDRONATE SODIUM
  73. DICLOFENAC SODIUM [Concomitant]
     Active Substance: DICLOFENAC SODIUM
     Indication: Product used for unknown indication
  74. DICLOFENAC SODIUM [Concomitant]
     Active Substance: DICLOFENAC SODIUM
  75. DICLOFENAC SODIUM [Concomitant]
     Active Substance: DICLOFENAC SODIUM
  76. LEFLUNOMIDE [Concomitant]
     Active Substance: LEFLUNOMIDE
     Indication: Rheumatoid arthritis
  77. LEFLUNOMIDE [Concomitant]
     Active Substance: LEFLUNOMIDE
  78. MYCOPHENOLATE MOFETIL [Concomitant]
     Active Substance: MYCOPHENOLATE MOFETIL
     Indication: Rheumatoid arthritis
  79. PANTOPRAZOLE SODIUM [Concomitant]
     Active Substance: PANTOPRAZOLE SODIUM
     Indication: Product used for unknown indication
  80. PANTOPRAZOLE SODIUM [Concomitant]
     Active Substance: PANTOPRAZOLE SODIUM
  81. PREGABALIN [Concomitant]
     Active Substance: PREGABALIN
     Indication: Product used for unknown indication
  82. TOFACITINIB CITRATE [Concomitant]
     Active Substance: TOFACITINIB CITRATE
     Indication: Rheumatoid arthritis
  83. TOFACITINIB CITRATE [Concomitant]
     Active Substance: TOFACITINIB CITRATE
     Indication: Psoriatic arthropathy
  84. TRAMADOL HYDROCHLORIDE [Concomitant]
     Active Substance: TRAMADOL HYDROCHLORIDE
     Indication: Product used for unknown indication
  85. TUMS [Concomitant]
     Active Substance: CALCIUM CARBONATE
     Indication: Product used for unknown indication
  86. DICLOFENAC DIETHYLAMINE [Concomitant]
     Active Substance: DICLOFENAC DIETHYLAMINE
     Indication: Product used for unknown indication

REACTIONS (1)
  - Death [Fatal]
